FAERS Safety Report 9697855 (Version 1)
Quarter: 2013Q4

REPORT INFORMATION
  Report Type: Spontaneous
  Country: US (occurrence: US)
  Receive Date: 20131120
  Receipt Date: 20131120
  Transmission Date: 20140711
  Serious: No
  Sender: FDA-Public Use
  Company Number: US-BAYER-2013-141983

PATIENT
  Age: 81 Year
  Sex: Female
  Weight: 108.84 kg

DRUGS (8)
  1. ALEVE CAPLET [Suspect]
     Indication: ARTHRITIS
     Dosage: 2 DF
     Route: 048
     Dates: start: 2011
  2. ALEVE CAPLET [Suspect]
     Indication: ARTHRITIS
     Dosage: 4 DF, BID
     Route: 048
     Dates: start: 2012
  3. ALEVE CAPLET [Suspect]
     Indication: ARTHRITIS
     Dosage: 1 DF, PRN
     Route: 048
     Dates: start: 201309
  4. ACETAMINOPHEN [Concomitant]
  5. METFORMIN [Concomitant]
  6. CALCIUM MAGNESIUM [Concomitant]
  7. PRESERVISION EYE VITAMIN AND MINERAL SUPPL. [Concomitant]
  8. SIMVASTATIN [Concomitant]

REACTIONS (2)
  - Incorrect drug administration duration [None]
  - Extra dose administered [None]
